FAERS Safety Report 20799834 (Version 1)
Quarter: 2022Q2

REPORT INFORMATION
  Report Type: Spontaneous
  Country: FR (occurrence: FR)
  Receive Date: 20220509
  Receipt Date: 20220509
  Transmission Date: 20220721
  Serious: Yes (Hospitalization, Other)
  Sender: FDA-Public Use
  Company Number: FR-002147023-NVSC2022FR086074

PATIENT
  Age: 12 Month
  Sex: Male

DRUGS (4)
  1. ACETAMINOPHEN [Suspect]
     Active Substance: ACETAMINOPHEN
     Indication: Pyrexia
     Dosage: 15 MILLIGRAM/KILOGRAM, FOUR TIMES/DAY (THE SECOND DOSE WAS 4H BEFORE THE CURRENT ADMISSION)
     Route: 054
  2. ACETAMINOPHEN [Suspect]
     Active Substance: ACETAMINOPHEN
     Indication: Drug provocation test
  3. ACETAMINOPHEN [Suspect]
     Active Substance: ACETAMINOPHEN
     Indication: Pyrexia
     Dosage: 600 MILLIGRAM, 3?6H AFTER EACH
     Route: 042
  4. ACETAMINOPHEN [Suspect]
     Active Substance: ACETAMINOPHEN
     Indication: Drug provocation test

REACTIONS (11)
  - Enterocolitis [Recovered/Resolved]
  - Pallor [Recovered/Resolved]
  - Tachycardia [Recovered/Resolved]
  - Asthenia [Recovered/Resolved]
  - Vomiting [Recovered/Resolved]
  - Respiratory alkalosis [Recovered/Resolved]
  - Methaemoglobinaemia [Recovered/Resolved]
  - Irritability [Recovered/Resolved]
  - Lethargy [Recovered/Resolved]
  - Crying [Recovered/Resolved]
  - Drug hypersensitivity [Recovered/Resolved]
